FAERS Safety Report 13924392 (Version 1)
Quarter: 2017Q3

REPORT INFORMATION
  Report Type: Spontaneous
  Country: US (occurrence: US)
  Receive Date: 20170831
  Receipt Date: 20170831
  Transmission Date: 20171127
  Serious: Yes (Disabling)
  Sender: FDA-Public Use
  Company Number: None

PATIENT
  Age: 32 Year
  Weight: 72 kg

DRUGS (1)
  1. LYRICA [Suspect]
     Active Substance: PREGABALIN
     Indication: FIBROMYALGIA
     Route: 048
     Dates: start: 20161005, end: 20161007

REACTIONS (4)
  - Feeling abnormal [None]
  - Haemorrhoids [None]
  - Incorrect dose administered [None]
  - Pain [None]

NARRATIVE: CASE EVENT DATE: 20161005
